FAERS Safety Report 14429728 (Version 1)
Quarter: 2018Q1

REPORT INFORMATION
  Report Type: Spontaneous
  Country: US (occurrence: US)
  Receive Date: 20180123
  Receipt Date: 20180123
  Transmission Date: 20180509
  Serious: No
  Sender: FDA-Public Use
  Company Number: None

PATIENT
  Age: 59 Year
  Sex: Male

DRUGS (1)
  1. ZEPATIER [Suspect]
     Active Substance: ELBASVIR\GRAZOPREVIR

REACTIONS (4)
  - Dysuria [None]
  - Anxiety [None]
  - Pyrexia [None]
  - Polyuria [None]

NARRATIVE: CASE EVENT DATE: 20180123
